FAERS Safety Report 5874909-6 (Version None)
Quarter: 2008Q3

REPORT INFORMATION
  Report Type: 
  Country: None (occurrence: None)
  Receive Date: 20080904
  Receipt Date: 20080828
  Transmission Date: 20090109
  Serious: Yes (Death, Other)
  Sender: FDA-Public Use
  Company Number: 2006JP003503

PATIENT
  Age: 63 Year
  Sex: Female
  Weight: 31 kg

DRUGS (22)
  1. TACROLIMUS [Suspect]
     Indication: RHEUMATOID ARTHRITIS
     Dosage: 1.5 MG, ORAL; 2 MG, UID/QD, ORAL
     Route: 048
     Dates: start: 20050608, end: 20050719
  2. TACROLIMUS [Suspect]
     Indication: RHEUMATOID ARTHRITIS
     Dosage: 1.5 MG, ORAL; 2 MG, UID/QD, ORAL
     Route: 048
     Dates: start: 20050720, end: 20080509
  3. PREDNISOLONE TAB [Suspect]
     Indication: RHEUMATOID ARTHRITIS
     Dosage: 5 MG, ORAL; 1 MG, TID, ORAL
     Route: 048
     Dates: start: 19971119, end: 20080509
  4. RHEUMATREX [Suspect]
     Indication: RHEUMATOID ARTHRITIS
     Dosage: 6 MG, WEEKLY, ORAL; 2 MG, BID, ORAL
     Route: 048
     Dates: start: 20020512, end: 20050719
  5. RHEUMATREX [Suspect]
     Indication: RHEUMATOID ARTHRITIS
     Dosage: 6 MG, WEEKLY, ORAL; 2 MG, BID, ORAL
     Route: 048
     Dates: start: 20050720, end: 20080501
  6. RHEUMATREX [Suspect]
     Indication: RHEUMATOID ARTHRITIS
     Dosage: 6 MG, WEEKLY, ORAL; 2 MG, BID, ORAL
     Route: 048
     Dates: start: 19981125
  7. ETODOLAC [Concomitant]
  8. DORNER (BERAPROST SODIUM) TABLET [Concomitant]
  9. GASTER D ORODISPERSIBLE CR TABLET [Concomitant]
  10. LANSOPRAZOLE [Concomitant]
  11. BONALON (ALENDRONIC ACID) TABLET [Concomitant]
  12. FOLIAMIN (FOLIC ACID) PER ORAL NOS [Concomitant]
  13. GASMOTIN (MOSAPRIDE CITRATE) PER ORAL NOS [Concomitant]
  14. SELTOUCH (FELBINAC) TAPE [Concomitant]
  15. LOXONIN (LOXOPROFEN SODIUM) TABLET [Concomitant]
  16. MICARDIS [Concomitant]
  17. GENTAMICIN SULFATE [Concomitant]
  18. ADALAT CR TABLET [Concomitant]
  19. FAROM (FAROPENEM SODIUM) TABLET [Concomitant]
  20. MUCODYNE (CARBOCISTEINE) TABLET [Concomitant]
  21. SAHNE (RETINOL) OINTMENT [Concomitant]
  22. PREDNISOLONE [Concomitant]

REACTIONS (6)
  - BETA-N-ACETYL-D-GLUCOSAMINIDASE INCREASED [None]
  - DIFFUSE ALVEOLAR DAMAGE [None]
  - INTERSTITIAL LUNG DISEASE [None]
  - PNEUMONIA [None]
  - PULMONARY FIBROSIS [None]
  - STREPTOCOCCAL INFECTION [None]
